FAERS Safety Report 8321476-3 (Version None)
Quarter: 2012Q2

REPORT INFORMATION
  Report Type: 
  Country: None (occurrence: None)
  Receive Date: 20120430
  Receipt Date: 20120430
  Transmission Date: 20120825
  Serious: No
  Sender: FDA-Public Use
  Company Number: None

PATIENT
  Sex: Female

DRUGS (1)
  1. AMPHETAMINE AND DEXTROAMPHETAMINE SALTS [Suspect]
     Dosage: 30 MG -1 1/2 TABLETS-
     Route: 048
     Dates: start: 20120311, end: 20120427

REACTIONS (3)
  - DRUG INEFFECTIVE [None]
  - PRODUCT SUBSTITUTION ISSUE [None]
  - PRODUCT QUALITY ISSUE [None]
